FAERS Safety Report 7020473-8 (Version None)
Quarter: 2010Q3

REPORT INFORMATION
  Report Type: 
  Country: None (occurrence: None)
  Receive Date: 20100929
  Receipt Date: 20100920
  Transmission Date: 20110219
  Serious: Yes (Other)
  Sender: FDA-Public Use
  Company Number: FR-ROCHE-725137

PATIENT
  Sex: Male
  Weight: 77 kg

DRUGS (4)
  1. XELODA [Suspect]
     Indication: COLON CANCER
     Dosage: FOR 14 DAYS. SIX CYCLES WERE PLANNED.
     Route: 048
     Dates: start: 20090706, end: 20100408
  2. VALSARTAN  AND HYDROCHLOROTHIAZIDE [Concomitant]
     Dosage: START: MORE THAN 5 YEARS. DOSE: 160/25 ? DF DAILY
     Route: 048
     Dates: start: 20050101
  3. FLECAINIDE ACETATE [Concomitant]
     Indication: ARRHYTHMIA
     Dosage: START DATE: FOR MORE THAN 5 YEARS
     Route: 048
     Dates: start: 20050101
  4. EUPANTOL [Concomitant]
     Dosage: DRUG: EUPANTOL 40

REACTIONS (9)
  - ANAEMIA [None]
  - AREFLEXIA [None]
  - DIABETES MELLITUS [None]
  - HEPATIC STEATOSIS [None]
  - HYPOKALAEMIA [None]
  - HYPONATRAEMIA [None]
  - INFLAMMATION [None]
  - OESOPHAGEAL CANDIDIASIS [None]
  - PROTEINURIA [None]
